FAERS Safety Report 5971310-1 (Version None)
Quarter: 2008Q4

REPORT INFORMATION
  Report Type: 
  Country: None (occurrence: None)
  Receive Date: 20081128
  Receipt Date: 20081117
  Transmission Date: 20090506
  Serious: Yes (Other)
  Sender: FDA-Public Use
  Company Number: US-PFIZER INC-2008098572

PATIENT
  Sex: Male
  Weight: 77.1 kg

DRUGS (10)
  1. CLEOCIN HYDROCHLORIDE [Suspect]
     Indication: TOOTH INFECTION
     Dates: start: 20080801, end: 20081116
  2. CLEOCIN HYDROCHLORIDE [Suspect]
     Indication: ABSCESS
  3. FUZEON [Concomitant]
  4. ISENTRESS [Concomitant]
  5. TRIZIVIR [Concomitant]
  6. ALL OTHER THERAPEUTIC PRODUCTS [Concomitant]
  7. LISINOPRIL [Concomitant]
  8. ZOLPIDEM [Concomitant]
  9. ADVIL [Concomitant]
  10. AMBIEN [Concomitant]

REACTIONS (5)
  - BLOOD CREATINE PHOSPHOKINASE INCREASED [None]
  - FEELING ABNORMAL [None]
  - GENERALISED OEDEMA [None]
  - NEGATIVE THOUGHTS [None]
  - NERVOUSNESS [None]
